FAERS Safety Report 7225473-0 (Version None)
Quarter: 2011Q1

REPORT INFORMATION
  Report Type: 
  Country: None (occurrence: None)
  Receive Date: 20110113
  Receipt Date: 20110111
  Transmission Date: 20110831
  Serious: Yes (Hospitalization, Other)
  Sender: FDA-Public Use
  Company Number: JP-BAYER-2010-001161

PATIENT
  Sex: Male
  Weight: 41 kg

DRUGS (7)
  1. AMLODIPINE [Concomitant]
     Indication: HYPERTENSION
     Dosage: DAILY DOSE 2.5 MG
     Route: 048
  2. LIVACT [Concomitant]
     Indication: HEPATIC CIRRHOSIS
     Dosage: DAILY DOSE 12 G
     Route: 048
  3. NEXAVAR [Suspect]
     Indication: HEPATIC NEOPLASM MALIGNANT
     Dosage: 200 MG
     Route: 048
     Dates: start: 20100901, end: 20100927
  4. CELECOXIB [Concomitant]
     Indication: INFECTIVE SPONDYLITIS
     Dosage: DAILY DOSE 200 MG
     Route: 048
  5. DUROTEP [Concomitant]
     Indication: INFECTIVE SPONDYLITIS
     Dosage: 4.2 MG, Q72HR
     Route: 062
  6. NEXAVAR [Suspect]
     Dosage: 400 MG
     Route: 048
     Dates: start: 20100928, end: 20101014
  7. URSO 250 [Concomitant]
     Indication: HEPATITIS C
     Dosage: DAILY DOSE 300 MG
     Route: 048

REACTIONS (5)
  - PNEUMONIA [None]
  - HEPATIC ENCEPHALOPATHY [None]
  - JAUNDICE [None]
  - INTESTINAL OBSTRUCTION [None]
  - LEUKOPENIA [None]
